FAERS Safety Report 5487943-5 (Version None)
Quarter: 2007Q4

REPORT INFORMATION
  Report Type: 
  Country: None (occurrence: None)
  Receive Date: 20071012
  Receipt Date: 20071012
  Transmission Date: 20080405
  Serious: Yes (Other)
  Sender: FDA-Public Use
  Company Number: None

PATIENT
  Age: 64 Year
  Sex: Female
  Weight: 92.0802 kg

DRUGS (3)
  1. PHOSPHOSODA GINGER LEMON [Suspect]
     Indication: COLONOSCOPY
     Dosage: 45 ML;X1;PO
     Route: 048
     Dates: start: 20071008, end: 20071008
  2. FLEET BISACODYL TABLETS (5 MG) [Suspect]
     Dosage: 20 MG;X1;PO
     Route: 048
     Dates: start: 20071008, end: 20071008
  3. NORVASC [Concomitant]

REACTIONS (4)
  - DEHYDRATION [None]
  - NAUSEA [None]
  - TREMOR [None]
  - VOMITING [None]
